FAERS Safety Report 17325260 (Version 4)
Quarter: 2020Q2

REPORT INFORMATION
  Report Type: Report from Study
  Country: BR (occurrence: BR)
  Receive Date: 20200127
  Receipt Date: 20200501
  Transmission Date: 20200713
  Serious: Yes (Hospitalization, Other)
  Sender: FDA-Public Use
  Company Number: PHHY2018BR008959

PATIENT
  Age: 64 Year
  Sex: Male
  Weight: 90 kg

DRUGS (10)
  1. COSENTYX [Suspect]
     Active Substance: SECUKINUMAB
     Indication: PSORIASIS
     Dosage: 300 MG, QMO (2 AMPOULES OF 150 MG)
     Route: 058
     Dates: end: 201911
  2. COSENTYX [Suspect]
     Active Substance: SECUKINUMAB
     Dosage: UNK
     Route: 065
     Dates: start: 201912
  3. CLOPIDOGREL [Suspect]
     Active Substance: CLOPIDOGREL BISULFATE
     Indication: MYOCARDIAL INFARCTION
     Dosage: 1 DF, QD
     Route: 048
     Dates: start: 2016
  4. SOMALGIN [Concomitant]
     Active Substance: ASPIRIN\DIHYDROXYALUMINUM AMINOACETATE ANHYDROUS\MAGNESIUM CARBONATE
     Indication: MYOCARDIAL INFARCTION
     Dosage: 1 DF, QD (SOMALGIN CARDIO)
     Route: 048
     Dates: start: 2016
  5. COSENTYX [Suspect]
     Active Substance: SECUKINUMAB
     Indication: PSORIATIC ARTHROPATHY
     Dosage: 300 MG, QW
     Route: 058
     Dates: start: 201804, end: 20180515
  6. CHOLECALCIFEROL [Concomitant]
     Active Substance: CHOLECALCIFEROL
     Indication: VITAMIN SUPPLEMENTATION
     Dosage: 1 DF, QD
     Route: 048
  7. COSENTYX [Suspect]
     Active Substance: SECUKINUMAB
     Dosage: UNK
     Route: 065
     Dates: start: 201911
  8. INDAPAMIDE. [Concomitant]
     Active Substance: INDAPAMIDE
     Indication: MYOCARDIAL INFARCTION
     Dosage: 1 DF, QD
     Route: 065
     Dates: start: 2010
  9. ACERTIL [Concomitant]
     Active Substance: PERINDOPRIL
     Indication: MYOCARDIAL INFARCTION
     Dosage: 1 DF, QD
     Route: 048
     Dates: start: 2016
  10. METOPROLOL SUCCINATE. [Concomitant]
     Active Substance: METOPROLOL SUCCINATE
     Indication: MYOCARDIAL INFARCTION
     Dosage: 1 DF, QD
     Route: 048
     Dates: start: 2016

REACTIONS (19)
  - Psoriatic arthropathy [Not Recovered/Not Resolved]
  - Pain [Recovering/Resolving]
  - Bursitis [Unknown]
  - Pruritus [Recovering/Resolving]
  - Road traffic accident [Unknown]
  - Drug ineffective [Not Recovered/Not Resolved]
  - Arthralgia [Not Recovered/Not Resolved]
  - Intestinal polyp [Recovering/Resolving]
  - Stress [Recovered/Resolved]
  - Skin exfoliation [Not Recovered/Not Resolved]
  - Insomnia [Unknown]
  - Tendonitis [Unknown]
  - Overweight [Unknown]
  - Malaise [Recovering/Resolving]
  - Dry skin [Recovering/Resolving]
  - Burning sensation [Recovering/Resolving]
  - Ear infection [Recovering/Resolving]
  - Skin fissures [Recovering/Resolving]
  - Psoriasis [Not Recovered/Not Resolved]

NARRATIVE: CASE EVENT DATE: 20180821
